FAERS Safety Report 6711923-2 (Version None)
Quarter: 2010Q2

REPORT INFORMATION
  Report Type: 
  Country: None (occurrence: None)
  Receive Date: 20100505
  Receipt Date: 20090720
  Transmission Date: 20101027
  Serious: No
  Sender: FDA-Public Use
  Company Number: US-TYCO HEALTHCARE/MALLINCKRODT-T200901389

PATIENT
  Age: 51 Year
  Sex: Female
  Weight: 83.447 kg

DRUGS (4)
  1. METHADONE HCL [Suspect]
     Indication: PAIN
     Dosage: 5 MG, 3-4 TIMES, QD
     Route: 048
     Dates: start: 20090711
  2. CYCLOBENZAPRINE [Concomitant]
     Indication: MUSCLE RELAXANT THERAPY
     Dosage: 10 MG, AT BEDTIME
     Route: 048
  3. CALCIUM W/VITAMIN D                /00188401/ [Concomitant]
     Indication: SUPPLEMENTATION THERAPY
     Dosage: UNK
     Route: 048
  4. METHADONE HCL [Concomitant]
     Dosage: 5 MG, 3-4X DAILY
     Route: 048
     Dates: start: 20090601

REACTIONS (5)
  - ABDOMINAL PAIN [None]
  - CONSTIPATION [None]
  - FAECAL INCONTINENCE [None]
  - FLATULENCE [None]
  - PRURITUS [None]
